FAERS Safety Report 7366050-0 (Version None)
Quarter: 2011Q1

REPORT INFORMATION
  Report Type: 
  Country: None (occurrence: None)
  Receive Date: 20110310
  Receipt Date: 20110301
  Transmission Date: 20110831
  Serious: Yes (Life-Threatening)
  Sender: FDA-Public Use
  Company Number: 2011045503

PATIENT
  Age: 65 Year
  Sex: Male

DRUGS (10)
  1. PEMETREXED [Suspect]
     Dosage: INTRAVENOUS
     Route: 042
     Dates: start: 20101221, end: 20110225
  2. PEMETREXED [Suspect]
     Dosage: INTRAVENOUS
     Route: 042
     Dates: start: 20101221, end: 20110225
  3. CISPLATIN [Suspect]
     Dosage: INTRAVENOUS
     Route: 042
     Dates: start: 20101221, end: 20110225
  4. DALTEPARIN SODIUM [Suspect]
     Indication: LUNG NEOPLASM MALIGNANT
     Dates: start: 20101220, end: 20110225
  5. ONDANSETRON [Suspect]
     Dosage: 8 MG, ORAL
     Route: 048
  6. PARACETAMOL (PARACETAMOL) [Concomitant]
  7. MORPHINE [Suspect]
     Dosage: 30 MG, ORAL
     Route: 048
  8. APREPITANT [Suspect]
     Dosage: INTRAVENOUS
     Route: 042
     Dates: start: 20110225, end: 20110225
  9. ONDANSETRON [Suspect]
     Dosage: 8 MG, ORAL
     Route: 048
  10. DEXAMETHASONE [Suspect]
     Dosage: 4MG, ORAL
     Route: 048
     Dates: end: 20110225

REACTIONS (6)
  - ABDOMINAL PAIN [None]
  - PERITONITIS [None]
  - CONSTIPATION [None]
  - INTESTINAL PERFORATION [None]
  - NAUSEA [None]
  - C-REACTIVE PROTEIN INCREASED [None]
